FAERS Safety Report 4503399-0 (Version None)
Quarter: 2004Q4

REPORT INFORMATION
  Report Type: 
  Country: None (occurrence: None)
  Receive Date: 20041117
  Receipt Date: 20041112
  Transmission Date: 20050328
  Serious: Yes (Hospitalization)
  Sender: FDA-Public Use
  Company Number: FR-GLAXOSMITHKLINE-B0351218A

PATIENT
  Age: 45 Year
  Sex: Male
  Weight: 86 kg

DRUGS (2)
  1. AUGMENTIN '125' [Suspect]
     Indication: ILL-DEFINED DISORDER
     Route: 042
     Dates: start: 20010225, end: 20010226
  2. PYOSTACINE [Suspect]
     Indication: ILL-DEFINED DISORDER
     Dosage: 2UNIT TWICE PER DAY
     Route: 048
     Dates: start: 20010222, end: 20010226

REACTIONS (3)
  - AGRANULOCYTOSIS [None]
  - PYREXIA [None]
  - SEPSIS [None]
